FAERS Safety Report 23151643 (Version 1)
Quarter: 2023Q4

REPORT INFORMATION
  Report Type: Spontaneous
  Country: IN (occurrence: IN)
  Receive Date: 20231107
  Receipt Date: 20231107
  Transmission Date: 20240109
  Serious: Yes (Other)
  Sender: FDA-Public Use
  Company Number: IN-PBT-008553

PATIENT
  Age: 47 Year
  Sex: Female

DRUGS (1)
  1. TACROLIMUS [Suspect]
     Active Substance: TACROLIMUS
     Indication: Prophylaxis against transplant rejection
     Route: 065

REACTIONS (4)
  - Central nervous system vasculitis [Recovered/Resolved]
  - Cerebral haemorrhage [Recovered/Resolved]
  - Diabetes mellitus [Recovering/Resolving]
  - Toxicity to various agents [Recovered/Resolved]
